FAERS Safety Report 5040584-6 (Version None)
Quarter: 2006Q2

REPORT INFORMATION
  Report Type: 
  Country: None (occurrence: None)
  Receive Date: 20060627
  Receipt Date: 20060627
  Transmission Date: 20061013
  Serious: Yes (Other)
  Sender: FDA-Public Use
  Company Number: None

PATIENT
  Age: 53 Year
  Sex: Female

DRUGS (2)
  1. DAPSONE [Suspect]
     Dates: start: 20060617, end: 20060621
  2. BACTRIM [Suspect]
     Dates: start: 20060617, end: 20060621

REACTIONS (2)
  - CHEST PAIN [None]
  - METHAEMOGLOBINAEMIA [None]
